FAERS Safety Report 17956297 (Version 1)
Quarter: 2020Q2

REPORT INFORMATION
  Report Type: Report from Study
  Country: IT (occurrence: IT)
  Receive Date: 20200629
  Receipt Date: 20200629
  Transmission Date: 20200714
  Serious: Yes (Hospitalization)
  Sender: FDA-Public Use
  Company Number: IT-ACCORD-187243

PATIENT
  Age: 82 Year
  Sex: Male

DRUGS (11)
  1. IVABRADINE [Interacting]
     Active Substance: IVABRADINE
     Indication: ANGINA UNSTABLE
     Route: 048
     Dates: start: 20180618, end: 20200504
  2. SERETIDE [Concomitant]
     Active Substance: FLUTICASONE PROPIONATE\SALMETEROL XINAFOATE
     Dosage: 25 MICROGRAMS / 50 MICROGRAMS / DOSE PRESSURIZED SUSPENSION
  3. FUROSEMIDE. [Concomitant]
     Active Substance: FUROSEMIDE
  4. CARVASIN [Concomitant]
     Active Substance: ISOSORBIDE DINITRATE
     Dosage: 10 MG
  5. CARDIOASPIRIN [Concomitant]
     Active Substance: ASPIRIN
     Dosage: STRENGTH: 100 MG
  6. RANEXA [Concomitant]
     Active Substance: RANOLAZINE
     Dosage: STRENGTH: 375 MG
  7. DILTIAZEM/DILTIAZEM HYDROCHLORIDE/DILTIAZEM MALATE [Suspect]
     Active Substance: DILTIAZEM
     Indication: HYPERTENSION
     Route: 048
     Dates: start: 20170101, end: 20200504
  8. NITRO-DUR [Concomitant]
     Active Substance: NITROGLYCERIN
     Dosage: 5 MG / DAY TRANSDERMAL PATCHES
  9. LANTUS [Suspect]
     Active Substance: INSULIN GLARGINE
     Indication: PRODUCT USED FOR UNKNOWN INDICATION
  10. HUMALOG [Suspect]
     Active Substance: INSULIN LISPRO
     Indication: PRODUCT USED FOR UNKNOWN INDICATION
  11. TORVAST [Concomitant]
     Active Substance: ATORVASTATIN
     Dosage: 10 MG

REACTIONS (5)
  - Syncope [Recovering/Resolving]
  - Bradycardia [Recovering/Resolving]
  - Hypoglycaemia [Recovering/Resolving]
  - Drug interaction [Unknown]
  - Ill-defined disorder [Recovering/Resolving]

NARRATIVE: CASE EVENT DATE: 20200504
